FAERS Safety Report 9331112 (Version 3)
Quarter: 2013Q3

REPORT INFORMATION
  Report Type: Spontaneous
  Country: DE (occurrence: DE)
  Receive Date: 20130605
  Receipt Date: 20130830
  Transmission Date: 20140515
  Serious: Yes (Hospitalization, Other)
  Sender: FDA-Public Use
  Company Number: DE-CELGENEUS-062-21880-13053733

PATIENT
  Age: 70 Year
  Sex: Male

DRUGS (6)
  1. REVLIMID [Suspect]
     Indication: PLASMA CELL MYELOMA
     Dosage: 5 MILLIGRAM
     Route: 048
     Dates: start: 20070601, end: 20070718
  2. REVLIMID [Suspect]
     Dosage: 5 MILLIGRAM
     Route: 048
     Dates: start: 20071101, end: 200804
  3. REVLIMID [Suspect]
     Dosage: 5 MILLIGRAM
     Route: 048
     Dates: start: 20080601, end: 20081201
  4. DEXAMETHASONE [Concomitant]
     Indication: PLASMA CELL MYELOMA
     Dosage: 20 MILLIGRAM
     Route: 065
     Dates: start: 20090101
  5. COTRIM FORTE [Concomitant]
     Indication: PROPHYLAXIS
     Route: 065
  6. CEFUROXIME [Concomitant]
     Indication: ANTI-INFECTIVE THERAPY
     Route: 065

REACTIONS (7)
  - Acute myeloid leukaemia [Unknown]
  - Immune thrombocytopenic purpura [Unknown]
  - Haemolysis [Unknown]
  - Upper respiratory tract infection [Unknown]
  - Plasma cell myeloma [Unknown]
  - Thrombocytopenia [Unknown]
  - Anaemia [Unknown]
